FAERS Safety Report 4511067-4 (Version None)
Quarter: 2004Q4

REPORT INFORMATION
  Report Type: 
  Country: None (occurrence: None)
  Receive Date: 20041015
  Receipt Date: 20040220
  Transmission Date: 20050328
  Serious: Yes (Hospitalization, Other)
  Sender: FDA-Public Use
  Company Number: 2004013511

PATIENT
  Sex: Male

DRUGS (2)
  1. NEURONTIN [Suspect]
     Indication: BIPOLAR DISORDER
     Dates: start: 20020101
  2. NEURONTIN [Suspect]
     Indication: MOOD SWINGS
     Dates: start: 20020101

REACTIONS (3)
  - FEELING ABNORMAL [None]
  - SUICIDAL IDEATION [None]
  - TINNITUS [None]
